FAERS Safety Report 18453574 (Version 1)
Quarter: 2020Q4

REPORT INFORMATION
  Report Type: Other
  Country: US (occurrence: US)
  Receive Date: 20201102
  Receipt Date: 20201102
  Transmission Date: 20210114
  Serious: Yes (Other)
  Sender: FDA-Public Use
  Company Number: US-ROCHE-2707208

PATIENT
  Age: 70 Year
  Sex: Male

DRUGS (11)
  1. CYTARABINE. [Concomitant]
     Active Substance: CYTARABINE
  2. PREDNISONE. [Concomitant]
     Active Substance: PREDNISONE
  3. DOXORUBICIN [Concomitant]
     Active Substance: DOXORUBICIN
  4. CYCLOPHOSPHAMIDE. [Concomitant]
     Active Substance: CYCLOPHOSPHAMIDE
  5. DEXAMETHASONE. [Concomitant]
     Active Substance: DEXAMETHASONE
  6. FLUDARABINE [Concomitant]
     Active Substance: FLUDARABINE PHOSPHATE
  7. CISPLATIN. [Concomitant]
     Active Substance: CISPLATIN
  8. RITUXIMAB. [Suspect]
     Active Substance: RITUXIMAB
     Indication: B-CELL LYMPHOMA
     Route: 065
     Dates: end: 2008
  9. CHLORAMBUCIL [Concomitant]
     Active Substance: CHLORAMBUCIL
  10. VINCRISTINE [Concomitant]
     Active Substance: VINCRISTINE
  11. MITOXANTRONE [Concomitant]
     Active Substance: MITOXANTRONE HYDROCHLORIDE

REACTIONS (5)
  - Pneumonia [Unknown]
  - Hypogammaglobulinaemia [Unknown]
  - Herpes zoster [Unknown]
  - Bronchiectasis [Unknown]
  - Sinusitis [Unknown]
